FAERS Safety Report 25938935 (Version 5)
Quarter: 2025Q4

REPORT INFORMATION
  Report Type: Report from Study
  Country: EU (occurrence: EU)
  Receive Date: 20251019
  Receipt Date: 20251203
  Transmission Date: 20260117
  Serious: Yes (Hospitalization, Other)
  Sender: ABBVIE
  Company Number: EU-ABBVIE-6505716

PATIENT
  Age: 74 Year
  Sex: Male

DRUGS (10)
  1. DUOPA [Suspect]
     Active Substance: CARBIDOPA\LEVODOPA
     Indication: Parkinson^s disease
     Dosage: 20 MG LEVODOPA+5 MG CARBIDOPA INTESTINAL GEL ;?INITIAL DOSES: MORNING 15 ML; CONTINUOUS 5.6 ML/H;...
     Route: 050
     Dates: start: 20230227
  2. DUOPA [Suspect]
     Active Substance: CARBIDOPA\LEVODOPA
     Route: 050
     Dates: start: 2025, end: 202510
  3. DUOPA [Suspect]
     Active Substance: CARBIDOPA\LEVODOPA
     Dosage: 20 MG LEVODOPA+5 MG CARBIDOPA INTESTINAL GEL :?DOSES: MORNING 8.5 ML; CONTINUOUS 8.6 ML/H; EXTRA ...
     Route: 050
     Dates: start: 202510, end: 202510
  4. DUOPA [Suspect]
     Active Substance: CARBIDOPA\LEVODOPA
     Dosage: FIRST ADMIN DATE OCT 2025
     Route: 050
     Dates: end: 20251020
  5. DUOPA [Suspect]
     Active Substance: CARBIDOPA\LEVODOPA
     Route: 050
     Dates: start: 20251022
  6. ACETAMINOPHEN [Concomitant]
     Active Substance: ACETAMINOPHEN
     Indication: Arthralgia
     Dosage: TIME INTERVAL: 0.33333333 DAYS: 3 TABLET. FORM STRENGTH: 1 G BEFORE DUODOPA
     Route: 048
  7. Daflon [Concomitant]
     Indication: Product used for unknown indication
     Dosage: TIME INTERVAL: 0.33333333 DAYS: 3 TABLET.BEFORE DUODOPA (BIOFLAVONOIDS)
     Route: 048
  8. METAMIZOLE MAGNESIUM [Concomitant]
     Active Substance: METAMIZOLE MAGNESIUM
     Indication: Arthralgia
     Dosage: TIME INTERVAL: 0.33333333 DAYS: 3 TABLET,.FORM STRENGTH: 575 MG BEFORE DUODOPA
     Route: 048
  9. CARBIDOPA LEVODOPA [Concomitant]
     Active Substance: CARBIDOPA\LEVODOPA
     Indication: Parkinson^s disease
     Dosage: 200/50MG. ONCE AT BEDTIME BEFORE DUODOPA
     Route: 048
  10. ROPINIROLE [Concomitant]
     Active Substance: ROPINIROLE
     Indication: Parkinson^s disease
     Dosage: TIME INTERVAL: 0.33333333 DAYS: 3 TABLET. FORM STRENGTH: 1 MG BEFORE DUODOPA
     Route: 048

REACTIONS (9)
  - Gastrointestinal disorder [Not Recovered/Not Resolved]
  - Intestinal obstruction [Recovered/Resolved]
  - Knee arthroplasty [Not Recovered/Not Resolved]
  - Incorrect route of product administration [Recovered/Resolved]
  - Wound dehiscence [Not Recovered/Not Resolved]
  - Off label use [Recovered/Resolved]
  - Confusional state [Not Recovered/Not Resolved]
  - Psychomotor hyperactivity [Not Recovered/Not Resolved]
  - Gait inability [Unknown]

NARRATIVE: CASE EVENT DATE: 20250801
